FAERS Safety Report 14381056 (Version 2)
Quarter: 2018Q3

REPORT INFORMATION
  Report Type: Spontaneous
  Country: CH (occurrence: CH)
  Receive Date: 20180112
  Receipt Date: 20180810
  Transmission Date: 20181010
  Serious: Yes (Hospitalization)
  Sender: FDA-Public Use
  Company Number: CH-009507513-1801CHE001544

PATIENT
  Age: 68 Year
  Sex: Male

DRUGS (22)
  1. OXYNORM [Suspect]
     Active Substance: OXYCODONE HYDROCHLORIDE
     Dosage: 5 MG, MAX 6 TIMES PER DAY. PUT IN RESERVE BETWEEN 08?DEC?2017 TO 15?DEC?2017
     Route: 048
     Dates: start: 201712, end: 20171207
  2. OXYNORM [Suspect]
     Active Substance: OXYCODONE HYDROCHLORIDE
     Dosage: 40 MG, DAILY
     Route: 048
     Dates: start: 20171208, end: 20171215
  3. CEFTRIAXONE. [Concomitant]
     Active Substance: CEFTRIAXONE
     Dosage: 2 G, QD
     Route: 042
     Dates: start: 20171220
  4. BACTRIM [Concomitant]
     Active Substance: SULFAMETHOXAZOLE\TRIMETHOPRIM
     Dosage: 800/160 MG, TIW
     Route: 048
  5. TARGIN [Suspect]
     Active Substance: NALOXONE HYDROCHLORIDE\OXYCODONE HYDROCHLORIDE
     Dosage: 1 DF, Q12H
     Route: 048
     Dates: start: 20171216, end: 20171220
  6. HALDOL [Concomitant]
     Active Substance: HALOPERIDOL
     Dosage: 0.5 MG, TID, AS STANDBY
     Route: 048
  7. NOVORAPID [Concomitant]
     Active Substance: INSULIN ASPART
     Dosage: AS STANDBY
     Route: 058
  8. TARGIN [Suspect]
     Active Substance: NALOXONE HYDROCHLORIDE\OXYCODONE HYDROCHLORIDE
     Dosage: 20/10 MG, 1/12 HOURS
     Route: 048
     Dates: start: 20171208, end: 20171215
  9. ELECTROLYTES (UNSPECIFIED) (+) SODIUM ACETATE [Concomitant]
     Dosage: 1,500 ML/ 24 HOURS
     Route: 042
  10. CALCIPARINE [Concomitant]
     Active Substance: HEPARIN CALCIUM
     Dosage: 5.000 U/ 0.2 ML, 2 TIMES / DAY
     Route: 058
  11. URSOFALK [Concomitant]
     Active Substance: URSODIOL
     Dosage: 250 MG, TID
     Route: 048
  12. BUDENOFALK [Concomitant]
     Active Substance: BUDESONIDE
     Dosage: 3 MG, TID
     Route: 048
  13. LEUCOVORIN. [Concomitant]
     Active Substance: LEUCOVORIN
     Dosage: 15 MG, 4TIMES A WEEK
     Route: 048
  14. POTASSIUM CITRATE. [Concomitant]
     Active Substance: POTASSIUM CITRATE
     Dosage: 30 MMOL, TID
     Route: 048
  15. JAKAVI [Concomitant]
     Active Substance: RUXOLITINIB
     Dosage: 5 MG, BID
     Route: 048
  16. VALTREX [Concomitant]
     Active Substance: VALACYCLOVIR HYDROCHLORIDE
     Dosage: 500 MG, QD
     Route: 048
  17. INVANZ [Suspect]
     Active Substance: ERTAPENEM SODIUM
     Dosage: 1 G PER DAY
     Route: 041
     Dates: start: 20171208, end: 20171220
  18. SERTRALINE HYDROCHLORIDE. [Concomitant]
     Active Substance: SERTRALINE HYDROCHLORIDE
     Dosage: 75 MG, QD
     Route: 048
  19. TARGIN [Suspect]
     Active Substance: NALOXONE HYDROCHLORIDE\OXYCODONE HYDROCHLORIDE
     Dosage: 1 DF, Q12H, DOSAGE INCREASED BETWEEN 08?DEC?2017 AND 15?DEC?2018
     Route: 048
     Dates: start: 201712, end: 20171207
  20. NEXIUM MUPS [Concomitant]
     Active Substance: ESOMEPRAZOLE MAGNESIUM
     Dosage: 40 MG, QD
     Route: 048
  21. OXYNORM [Suspect]
     Active Substance: OXYCODONE HYDROCHLORIDE
     Dosage: 5 MG, MAX 6 TIMES PER DAY. PUT IN RESERVE BETWEEN 08?DEC?2017 TO 15?DEC?2017
     Route: 048
     Dates: start: 20171216
  22. ONDANSETRON [Concomitant]
     Active Substance: ONDANSETRON
     Dosage: 4 MG, TID, AS STANDBY
     Route: 042

REACTIONS (1)
  - Confusional state [Recovered/Resolved]

NARRATIVE: CASE EVENT DATE: 20171218
